FAERS Safety Report 7328499-1 (Version None)
Quarter: 2011Q1

REPORT INFORMATION
  Report Type: 
  Country: None (occurrence: None)
  Receive Date: 20110303
  Receipt Date: 20110121
  Transmission Date: 20110831
  Serious: Yes (Other)
  Sender: FDA-Public Use
  Company Number: FR-PFIZER INC-2010155857

PATIENT
  Age: 57 Year
  Sex: Male
  Weight: 72 kg

DRUGS (3)
  1. SALAZOPYRINE [Suspect]
     Indication: ANKYLOSING SPONDYLITIS
     Dosage: 1000 MG, 2X/DAY
     Dates: start: 20090102
  2. SALAZOPYRINE [Suspect]
     Indication: SIGMOIDITIS
     Dosage: 500 MG, 2X/DAY
     Dates: start: 20090224, end: 20090401
  3. SALAZOPYRINE [Suspect]
     Dosage: UNK
     Dates: start: 20070801, end: 20080801

REACTIONS (1)
  - NEUTROPENIA [None]
